FAERS Safety Report 18326066 (Version 1)
Quarter: 2020Q3

REPORT INFORMATION
  Report Type: Spontaneous
  Country: NL (occurrence: NL)
  Receive Date: 20200929
  Receipt Date: 20200929
  Transmission Date: 20201103
  Serious: Yes (Other)
  Sender: FDA-Public Use
  Company Number: NL-JNJFOC-20200933614

PATIENT
  Age: 75 Year
  Sex: Male

DRUGS (7)
  1. ELIGARD [Suspect]
     Active Substance: LEUPROLIDE ACETATE
     Dosage: 22.5 MG, EVERY 3 MONTHS
     Route: 058
     Dates: start: 20200610
  2. XTANDI [Suspect]
     Active Substance: ENZALUTAMIDE
     Indication: PROSTATE CANCER
     Route: 065
  3. ELIGARD [Suspect]
     Active Substance: LEUPROLIDE ACETATE
     Dosage: 22.5 MG, EVERY 3 MONTHS
     Route: 058
     Dates: start: 20200908
  4. ZYTIGA [Suspect]
     Active Substance: ABIRATERONE ACETATE
     Route: 048
     Dates: start: 20200603
  5. ELIGARD [Suspect]
     Active Substance: LEUPROLIDE ACETATE
     Indication: PROSTATE CANCER
     Dosage: 22.5 MG, EVERY 3 MONTHS
     Route: 058
     Dates: start: 20180321
  6. ZYTIGA [Suspect]
     Active Substance: ABIRATERONE ACETATE
     Indication: PROSTATE CANCER
     Route: 048
  7. ELIGARD [Suspect]
     Active Substance: LEUPROLIDE ACETATE
     Dosage: 22.5 MG, EVERY 3 MONTHS
     Route: 058
     Dates: start: 20200310

REACTIONS (6)
  - Liver function test increased [Recovered/Resolved]
  - Memory impairment [Recovered/Resolved]
  - Inappropriate schedule of product administration [Unknown]
  - Off label use [Unknown]
  - Neoplasm progression [Not Recovered/Not Resolved]
  - Loss of consciousness [Recovered/Resolved]

NARRATIVE: CASE EVENT DATE: 20200603
